FAERS Safety Report 10032036 (Version 1)
Quarter: 2014Q1

REPORT INFORMATION
  Report Type: Report from Study
  Country: CA (occurrence: CA)
  Receive Date: 20140324
  Receipt Date: 20140324
  Transmission Date: 20141002
  Serious: Yes (Death)
  Sender: FDA-Public Use
  Company Number: CA-BAXTER-2014BAX014967

PATIENT
  Age: 31 Week
  Sex: 0

DRUGS (2)
  1. PRIMENE 10% [Suspect]
     Indication: PARENTERAL NUTRITION
     Dosage: 1.0 G/KG
     Route: 042
  2. DEXTROSE 10% INJECTION 10 MG [Suspect]
     Indication: PRODUCT USED FOR UNKNOWN INDICATION
     Dosage: 80 CC/KG
     Route: 065

REACTIONS (1)
  - Death [Fatal]
